FAERS Safety Report 23280454 (Version 3)
Quarter: 2023Q4

REPORT INFORMATION
  Report Type: Report from Study
  Country: CA (occurrence: CA)
  Receive Date: 20231211
  Receipt Date: 20231229
  Transmission Date: 20240110
  Serious: Yes (Hospitalization, Other)
  Sender: FDA-Public Use
  Company Number: CA-BEH-2023165993

PATIENT
  Age: 80 Year
  Sex: Female
  Weight: 63 kg

DRUGS (19)
  1. HIZENTRA [Suspect]
     Active Substance: HUMAN IMMUNOGLOBULIN G
     Indication: Secondary immunodeficiency
     Dosage: 5 GRAM, QW
     Route: 065
     Dates: start: 20231116
  2. HIZENTRA [Suspect]
     Active Substance: HUMAN IMMUNOGLOBULIN G
     Dosage: UNK
     Route: 065
  3. HIZENTRA [Suspect]
     Active Substance: HUMAN IMMUNOGLOBULIN G
     Dosage: UNK
     Route: 065
  4. HIZENTRA [Suspect]
     Active Substance: HUMAN IMMUNOGLOBULIN G
     Dosage: UNK
     Route: 065
  5. HIZENTRA [Suspect]
     Active Substance: HUMAN IMMUNOGLOBULIN G
     Dosage: UNK
     Route: 065
     Dates: start: 20231122
  6. HIZENTRA [Suspect]
     Active Substance: HUMAN IMMUNOGLOBULIN G
     Dosage: UNK
     Route: 065
     Dates: start: 20231208
  7. AMLODIPINE [Concomitant]
     Active Substance: AMLODIPINE BESYLATE
  8. APIXABAN [Concomitant]
     Active Substance: APIXABAN
  9. FUROSEMIDE [Concomitant]
     Active Substance: FUROSEMIDE
  10. SULFATRIM [Concomitant]
     Active Substance: SULFAMETHOXAZOLE\TRIMETHOPRIM
  11. ASPIRIN [Concomitant]
     Active Substance: ASPIRIN
  12. ATORVASTATIN [Concomitant]
     Active Substance: ATORVASTATIN
  13. CHOLECALCIFEROL [Concomitant]
     Active Substance: CHOLECALCIFEROL
  14. DEXILANT [Concomitant]
     Active Substance: DEXLANSOPRAZOLE
  15. JAMP CALCIUM [Concomitant]
  16. VITAMIN B12 [Concomitant]
     Active Substance: CYANOCOBALAMIN
  17. NOVOSPIROTON [Concomitant]
  18. PREGABALIN [Concomitant]
     Active Substance: PREGABALIN
  19. EZETIMIBE [Concomitant]
     Active Substance: EZETIMIBE

REACTIONS (16)
  - No adverse event [Unknown]
  - Product use issue [Unknown]
  - Suffocation feeling [Unknown]
  - Panic reaction [Unknown]
  - Breath sounds abnormal [Unknown]
  - Inadequate aseptic technique in use of product [Unknown]
  - Confusional state [Unknown]
  - Fine motor skill dysfunction [Unknown]
  - Musculoskeletal stiffness [Unknown]
  - Emotional disorder [Unknown]
  - Crying [Unknown]
  - Pneumonia [Unknown]
  - Influenza [Unknown]
  - Fall [Unknown]
  - Muscle spasms [Unknown]
  - Confusional state [Unknown]

NARRATIVE: CASE EVENT DATE: 20231124
